FAERS Safety Report 4350026-1 (Version None)
Quarter: 2004Q2

REPORT INFORMATION
  Report Type: 
  Country: None (occurrence: None)
  Receive Date: 20040429
  Receipt Date: 20040408
  Transmission Date: 20050107
  Serious: Yes (Death, Hospitalization, Disabling, Other)
  Sender: FDA-Public Use
  Company Number: IT-BRISTOL-MYERS SQUIBB COMPANY-12555181

PATIENT
  Age: 63 Year
  Sex: Male

DRUGS (4)
  1. CETUXIMAB [Suspect]
     Indication: COLORECTAL CANCER METASTATIC
     Dosage: INITIAL THERAPY DATE: 09-MAR-04. DOSE INTERRUPTED DUE TO EVENT. LAST ADMIN. 09-APR-04
     Route: 042
     Dates: start: 20040330, end: 20040409
  2. IRINOTECAN [Suspect]
     Indication: COLORECTAL CANCER METASTATIC
     Dosage: INITIAL THERAPY DATE: 09-MAR-04.
     Route: 042
     Dates: start: 20040330, end: 20040330
  3. DURAGESIC [Concomitant]
     Dates: start: 20040101
  4. MS CONTIN [Concomitant]
     Dosage: REPORTED AS MS CONTIN 30 1 CAP X 2/DAY
     Dates: start: 20040101

REACTIONS (3)
  - COLORECTAL CANCER METASTATIC [None]
  - CONVULSION [None]
  - FATIGUE [None]
